FAERS Safety Report 8555503-5 (Version None)
Quarter: 2012Q3

REPORT INFORMATION
  Report Type: 
  Country: None (occurrence: None)
  Receive Date: 20120731
  Receipt Date: 20111212
  Transmission Date: 20120928
  Serious: Yes (Other)
  Sender: FDA-Public Use
  Company Number: US-ASTRAZENECA-2011SE19027

PATIENT
  Age: 41 Year
  Sex: Male
  Weight: 73 kg

DRUGS (6)
  1. SEROQUEL [Suspect]
     Route: 048
  2. TEGRETOL [Concomitant]
     Indication: CONVULSION
     Route: 048
  3. TOPAMAX [Concomitant]
     Indication: MIGRAINE
     Route: 048
  4. SEROQUEL [Suspect]
     Indication: BIPOLAR DISORDER
     Route: 048
     Dates: start: 20050101, end: 20110330
  5. SEROQUEL [Suspect]
     Route: 048
  6. SEROQUEL [Suspect]
     Indication: SLEEP DISORDER
     Route: 048
     Dates: start: 20050101, end: 20110330

REACTIONS (9)
  - DRUG DOSE OMISSION [None]
  - INSOMNIA [None]
  - TREMOR [None]
  - CONVULSION [None]
  - VOMITING [None]
  - OFF LABEL USE [None]
  - MIGRAINE [None]
  - AMNESIA [None]
  - DRUG WITHDRAWAL SYNDROME [None]
